FAERS Safety Report 15335485 (Version 1)
Quarter: 2018Q3

REPORT INFORMATION
  Report Type: Spontaneous
  Country: US (occurrence: US)
  Receive Date: 20180827
  Receipt Date: 20180827
  Transmission Date: 20181010
  Serious: Yes (Hospitalization)
  Sender: FDA-Public Use
  Company Number: None

PATIENT
  Sex: Male

DRUGS (13)
  1. BUDESONIDE. [Concomitant]
     Active Substance: BUDESONIDE
  2. CALCIUM CARB [Concomitant]
     Active Substance: CALCIUM CARBONATE
  3. VIGABATRIN. [Suspect]
     Active Substance: VIGABATRIN
     Indication: SEIZURE
     Route: 048
     Dates: start: 20180723
  4. BACLOFEN. [Concomitant]
     Active Substance: BACLOFEN
  5. LEVETIRACETA [Concomitant]
  6. BISACODYL. [Concomitant]
     Active Substance: BISACODYL
  7. ALBUTEROL. [Concomitant]
     Active Substance: ALBUTEROL
  8. CENTRUM KIDS [Concomitant]
  9. CYPROHEPTAD [Concomitant]
  10. ERYPED [Concomitant]
     Active Substance: ERYTHROMYCIN ETHYLSUCCINATE
  11. VALPROIC ACID. [Concomitant]
     Active Substance: VALPROIC ACID
  12. MONTELUKAST [Concomitant]
     Active Substance: MONTELUKAST SODIUM
  13. RANITIDINE. [Concomitant]
     Active Substance: RANITIDINE

REACTIONS (1)
  - Hospitalisation [None]
